FAERS Safety Report 17958470 (Version 1)
Quarter: 2020Q2

REPORT INFORMATION
  Report Type: Spontaneous
  Country: US (occurrence: US)
  Receive Date: 20200629
  Receipt Date: 20200629
  Transmission Date: 20200714
  Serious: Yes (Hospitalization, Other)
  Sender: FDA-Public Use
  Company Number: US-HIKMA PHARMACEUTICALS USA INC.-US-H14001-20-03053

PATIENT
  Age: 27 Year
  Sex: Female

DRUGS (1)
  1. METHAMPHETAMINE HYDROCHLORIDE. [Suspect]
     Active Substance: METHAMPHETAMINE HYDROCHLORIDE
     Indication: PRODUCT USED FOR UNKNOWN INDICATION
     Route: 065

REACTIONS (3)
  - Cerebral infarction [Unknown]
  - Reversible cerebral vasoconstriction syndrome [Unknown]
  - Maternal exposure during pregnancy [Recovered/Resolved]
